FAERS Safety Report 24173008 (Version 1)
Quarter: 2024Q3

REPORT INFORMATION
  Report Type: Spontaneous
  Country: US (occurrence: US)
  Receive Date: 20240805
  Receipt Date: 20240805
  Transmission Date: 20241016
  Serious: Yes (Other)
  Sender: CSL BEHRING
  Company Number: US-BEH- 2024176403

PATIENT
  Age: 60 Year
  Sex: Female

DRUGS (1)
  1. HIZENTRA [Suspect]
     Active Substance: HUMAN IMMUNOGLOBULIN G
     Indication: Hereditary angioedema
     Dosage: 8 G, QW EVERY WEEK
     Route: 058

REACTIONS (10)
  - Pneumonia bacterial [Unknown]
  - Staphylococcal infection [Unknown]
  - Ear infection staphylococcal [Unknown]
  - Sinusitis bacterial [Unknown]
  - Malaise [Unknown]
  - Pain [Unknown]
  - Mouth swelling [Unknown]
  - Accident [Unknown]
  - Pain in jaw [Unknown]
  - Off label use [Unknown]

NARRATIVE: CASE EVENT DATE: 20240627
